FAERS Safety Report 18385196 (Version 1)
Quarter: 2020Q4

REPORT INFORMATION
  Report Type: Spontaneous
  Country: US (occurrence: US)
  Receive Date: 20201015
  Receipt Date: 20201015
  Transmission Date: 20210114
  Serious: No
  Sender: FDA-Public Use
  Company Number: US-ELI_LILLY_AND_COMPANY-US202010004940

PATIENT
  Sex: Male

DRUGS (1)
  1. TRULICITY [Suspect]
     Active Substance: DULAGLUTIDE
     Indication: PRODUCT USED FOR UNKNOWN INDICATION
     Dosage: 0.75 MG, UNKNOWN
     Route: 065
     Dates: start: 202007

REACTIONS (7)
  - Gastroenteritis viral [Unknown]
  - Vomiting [Unknown]
  - Headache [Unknown]
  - Flatulence [Unknown]
  - Malaise [Unknown]
  - Retching [Unknown]
  - Diarrhoea [Unknown]
